FAERS Safety Report 17959290 (Version 1)
Quarter: 2020Q2

REPORT INFORMATION
  Report Type: Spontaneous
  Country: ES (occurrence: ES)
  Receive Date: 20200630
  Receipt Date: 20200630
  Transmission Date: 20200714
  Serious: Yes (Other)
  Sender: FDA-Public Use
  Company Number: ES-TEVA-2020-ES-1792051

PATIENT
  Age: 59 Year
  Sex: Female

DRUGS (4)
  1. OXALIPLATINO TEVA 5 MG/ML CONCENTRADO PARA SOLUCION PARA PERFUSION EFG [Suspect]
     Active Substance: OXALIPLATIN
     Indication: ADENOCARCINOMA GASTRIC
     Dosage: 183 MG
     Route: 042
     Dates: start: 20190923
  2. CAPECITABINA ACCORD 500 MG COMPRIMIDOS RECUBIERTOS CON PELICULA EFG 12 [Concomitant]
     Indication: ADENOCARCINOMA GASTRIC
     Dosage: 3000 MG
     Route: 048
     Dates: start: 20190923
  3. FORTECORTIN 4 MG COMPRIMIDOS, 30 COMPRIMIDOS [Concomitant]
     Active Substance: DEXAMETHASONE
     Dosage: 4 MG
     Route: 048
     Dates: start: 20200515
  4. OMEPRAZOL RATIO 20 MG CAPSULAS DURAS GASTRORRESISTENTES EFG , 28 C?PSU [Concomitant]
     Dosage: 20 MG
     Route: 048
     Dates: start: 20190911

REACTIONS (2)
  - Eyelid function disorder [Recovered/Resolved]
  - Aphonia [Recovered/Resolved]

NARRATIVE: CASE EVENT DATE: 20200526
